FAERS Safety Report 5261261-2 (Version None)
Quarter: 2007Q1

REPORT INFORMATION
  Report Type: 
  Country: None (occurrence: None)
  Receive Date: 20070309
  Receipt Date: 20070302
  Transmission Date: 20070707
  Serious: Yes (Hospitalization)
  Sender: FDA-Public Use
  Company Number: DE-PFIZER INC-2007016810

PATIENT
  Sex: Male

DRUGS (14)
  1. ADRIAMYCIN PFS [Suspect]
     Indication: HODGKIN'S DISEASE STAGE IV
  2. BLEOMYCIN SULFATE [Suspect]
     Indication: HODGKIN'S DISEASE STAGE IV
  3. ETOPOSIDE [Suspect]
     Indication: HODGKIN'S DISEASE STAGE IV
  4. VINCRISTINE [Suspect]
     Indication: HODGKIN'S DISEASE STAGE IV
  5. CYCLOPHOSPHAMIDE [Suspect]
     Indication: HODGKIN'S DISEASE STAGE IV
  6. EPREX [Suspect]
     Indication: ANAEMIA OF MALIGNANT DISEASE
     Dosage: TEXT:40000 IU/L/WEEK
     Route: 058
  7. PLACEBO [Suspect]
     Indication: ANAEMIA OF MALIGNANT DISEASE
     Dosage: TEXT:1 DF/WEEK
     Route: 058
  8. PROCARBAZINE [Suspect]
     Indication: HODGKIN'S DISEASE STAGE IV
  9. PREDNISONE [Suspect]
     Indication: HODGKIN'S DISEASE STAGE IV
  10. NEXIUM [Concomitant]
  11. BACTRIM [Concomitant]
  12. ZOFRAN [Concomitant]
  13. FERRO SANOL [Concomitant]
  14. OTRIVIN [Concomitant]

REACTIONS (2)
  - HERPES ZOSTER [None]
  - PULMONARY MYCOSIS [None]
